FAERS Safety Report 5412551-1 (Version None)
Quarter: 2007Q3

REPORT INFORMATION
  Report Type: 
  Country: None (occurrence: None)
  Receive Date: 20070813
  Receipt Date: 20070808
  Transmission Date: 20080115
  Serious: Yes (Other)
  Sender: FDA-Public Use
  Company Number: B0483082A

PATIENT
  Sex: Female

DRUGS (2)
  1. COMBIVIR [Suspect]
     Indication: DRUG USE FOR UNKNOWN INDICATION
  2. KALETRA [Concomitant]

REACTIONS (2)
  - CUSHING'S SYNDROME [None]
  - DRUG EXPOSURE DURING PREGNANCY [None]
